FAERS Safety Report 18487133 (Version 3)
Quarter: 2021Q4

REPORT INFORMATION
  Report Type: Spontaneous
  Country: US (occurrence: US)
  Receive Date: 20201110
  Receipt Date: 20211123
  Transmission Date: 20220303
  Serious: Yes (Life-Threatening, Hospitalization, Other)
  Sender: FDA-Public Use
  Company Number: US-PFIZER INC-2020432149

PATIENT
  Age: 52 Year
  Sex: Female

DRUGS (54)
  1. HEPARIN SODIUM [Suspect]
     Active Substance: HEPARIN SODIUM
     Indication: Prophylaxis
     Dosage: 3100 UNITS; POD -10
     Route: 042
  2. HEPARIN SODIUM [Suspect]
     Active Substance: HEPARIN SODIUM
     Indication: Anticoagulant therapy
     Dosage: 42000 UNITS; DAY OF SURGERY
     Route: 042
  3. HEPARIN SODIUM [Suspect]
     Active Substance: HEPARIN SODIUM
     Dosage: 5000 UNITS; POD 2
     Route: 058
  4. HEPARIN SODIUM [Suspect]
     Active Substance: HEPARIN SODIUM
     Dosage: 5000 UNITS X2; POD 3
     Route: 058
  5. HEPARIN SODIUM [Suspect]
     Active Substance: HEPARIN SODIUM
     Dosage: 5000 UNITSX1; POD 4
     Route: 058
  6. HEPARIN SODIUM [Suspect]
     Active Substance: HEPARIN SODIUM
     Dosage: 5000 UNITSX2; POD 6
     Route: 058
  7. AMIODARONE [Suspect]
     Active Substance: AMIODARONE
     Indication: Prophylaxis
     Dosage: 200 MG, 2X/DAY; POD 1
     Route: 048
  8. AMIODARONE [Suspect]
     Active Substance: AMIODARONE
     Indication: Extrasystoles
     Dosage: 200 MG, 2X/DAY; POD 2
     Route: 048
  9. AMIODARONE [Suspect]
     Active Substance: AMIODARONE
     Dosage: 400 MG, 2X/DAY; POD 3
     Route: 048
  10. AMIODARONE [Suspect]
     Active Substance: AMIODARONE
     Indication: Prophylaxis
     Dosage: 150-MG X2; POD 3
     Route: 040
  11. AMIODARONE [Suspect]
     Active Substance: AMIODARONE
     Indication: Extrasystoles
     Dosage: 150 MG, SINGLE, ON POD 9
     Route: 042
  12. PHENYLEPHRINE [Concomitant]
     Active Substance: PHENYLEPHRINE HYDROCHLORIDE
     Dosage: 20-40 MCG/MIN
  13. PHENYLEPHRINE [Concomitant]
     Active Substance: PHENYLEPHRINE HYDROCHLORIDE
     Dosage: WEANED OFF
  14. PHENYLEPHRINE [Concomitant]
     Active Substance: PHENYLEPHRINE HYDROCHLORIDE
     Dosage: 40 MCG/MIN AT MIDNIGHT OFF AT 0930
  15. DEXTROSE [Concomitant]
     Active Substance: DEXTROSE
     Dosage: 50 G
  16. DEXTROSE [Concomitant]
     Active Substance: DEXTROSE
     Dosage: THRICE GIVEN 25 G OF DEXTROSE 50%
  17. DEXTROSE [Concomitant]
     Active Substance: DEXTROSE
     Dosage: CONTINUOUS INFUSION OF DEXTROSE 5% IN LACTATED RINGERS (D5LR)
  18. DEXTROSE [Concomitant]
     Active Substance: DEXTROSE
     Dosage: DEXTROSE 5% WITH SODIUM BICARBONATE 150 MEQ/L
  19. SODIUM BICARBONATE [Concomitant]
     Active Substance: SODIUM BICARBONATE
     Dosage: 3 SLOW IV PUSHES OF SODIUM BICARBONATE 50 MEQ
     Route: 042
  20. SODIUM BICARBONATE [Concomitant]
     Active Substance: SODIUM BICARBONATE
     Dosage: DEXTROSE 5% WITH SODIUM BICARBONATE 150 MEQ/L
  21. INSULIN NOS [Concomitant]
     Active Substance: INSULIN NOS
     Dosage: 2 UNITS/HR DURING CPB
  22. PIPERACILLIN SODIUM\TAZOBACTAM SODIUM [Concomitant]
     Active Substance: PIPERACILLIN SODIUM\TAZOBACTAM SODIUM
     Indication: Nosocomial infection
     Dosage: POD 4 TO POD 6
  23. VANCOMYCIN [Concomitant]
     Active Substance: VANCOMYCIN
     Indication: Nosocomial infection
     Dosage: DAY OF SURGERY
  24. VANCOMYCIN [Concomitant]
     Active Substance: VANCOMYCIN
     Dosage: POD 4
  25. LEVOTHYROXINE [Concomitant]
     Active Substance: LEVOTHYROXINE
     Dosage: POD 1 TO POD 3; POD 6
     Route: 048
  26. FONDAPARINUX [Concomitant]
     Active Substance: FONDAPARINUX
     Indication: Prophylaxis
     Dosage: UNK
  27. ASPIRIN [Concomitant]
     Active Substance: ASPIRIN
     Indication: Prophylaxis
     Dosage: POD 3 TO POD 5
  28. ISOFLURANE [Concomitant]
     Active Substance: ISOFLURANE
     Dosage: 0.5%-1% WITH OXYGEN; DAY OF SURGERY
  29. PROPOFOL [Concomitant]
     Active Substance: PROPOFOL
     Dosage: UNK
  30. CEFAZOLIN [Concomitant]
     Active Substance: CEFAZOLIN
     Dosage: DAY OF SURGERY; POD 1
  31. FAMOTIDINE [Concomitant]
     Active Substance: FAMOTIDINE
     Dosage: DAY OF SURGERY
  32. FAMOTIDINE [Concomitant]
     Active Substance: FAMOTIDINE
     Dosage: POD 2-6
  33. ONDANSETRON [Concomitant]
     Active Substance: ONDANSETRON
     Dosage: DAY OF SURGERY
  34. ONDANSETRON [Concomitant]
     Active Substance: ONDANSETRON
     Dosage: POD 2
  35. ACETYLCYSTEINE [Concomitant]
     Active Substance: ACETYLCYSTEINE
     Dosage: DAY OF SURGERY TO POD 3
  36. ALBUTEROL\IPRATROPIUM [Concomitant]
     Active Substance: ALBUTEROL\IPRATROPIUM
     Dosage: DAY OF SURGERY TO POD 6
  37. MORPHINE [Concomitant]
     Active Substance: MORPHINE
     Dosage: DAY OF SURGERY
  38. KETOROLAC [Concomitant]
     Active Substance: KETOROLAC TROMETHAMINE
     Dosage: DAY OF SURGERY, POD 1
  39. OXYCODONE [Concomitant]
     Active Substance: OXYCODONE
     Dosage: DAY OF SURGERY TO POD1
  40. FENTANYL [Concomitant]
     Active Substance: FENTANYL
     Dosage: DAY OF SURGERY TO POD 2; POD 4 TO 6
  41. DIAZEPAM [Concomitant]
     Active Substance: DIAZEPAM
     Dosage: DAY OF SURGERY TO POD 2
  42. HYDROCODONE [Concomitant]
     Active Substance: HYDROCODONE
     Dosage: POD 1 TO POD 2
  43. GABAPENTIN [Concomitant]
     Active Substance: GABAPENTIN
     Dosage: POD 1 TO POD 3
  44. OMEPRAZOLE [Concomitant]
     Active Substance: OMEPRAZOLE
     Dosage: POD 1 TO POD 3
  45. CLONAZEPAM [Concomitant]
     Active Substance: CLONAZEPAM
     Dosage: POD 2 TO POD 3
  46. FUROSEMIDE [Concomitant]
     Active Substance: FUROSEMIDE
     Dosage: POD 2 TO POD 3
  47. LAMOTRIGINE [Concomitant]
     Active Substance: LAMOTRIGINE
     Dosage: POD 2 TO POD 3
  48. METOPROLOL [Concomitant]
     Active Substance: METOPROLOL
     Dosage: POD 2 TO POD 6
  49. ACETAMINOPHEN [Concomitant]
     Active Substance: ACETAMINOPHEN
     Dosage: POD 3, POD 5
  50. PANTOPRAZOLE [Concomitant]
     Active Substance: PANTOPRAZOLE
     Dosage: POD 4 TO POD 6
  51. LORAZEPAM [Concomitant]
     Active Substance: LORAZEPAM
     Dosage: POD 4 TO POD 6
  52. HYDROMORPHONE [Concomitant]
     Active Substance: HYDROMORPHONE
     Dosage: POD 6
  53. SODIUM CHLORIDE [Concomitant]
     Active Substance: SODIUM CHLORIDE
     Dosage: DAY OF SURGERY TO POD 2
  54. LACTATED RINGERS SOLUTION [Concomitant]
     Active Substance: CALCIUM CHLORIDE\POTASSIUM CHLORIDE\SODIUM CHLORIDE\SODIUM LACTATE
     Dosage: INFUSION OF DEXTROSE 5% IN LACTATED RINGERS

REACTIONS (8)
  - Respiratory alkalosis [Recovered/Resolved]
  - Encephalopathy [Recovered/Resolved]
  - Nosocomial infection [Recovered/Resolved]
  - Drug hypersensitivity [Recovered/Resolved]
  - Drug-induced liver injury [Recovered/Resolved]
  - Mixed liver injury [Recovered/Resolved]
  - Hypoglycaemia [Recovered/Resolved]
  - Hypogammaglobulinaemia [Recovered/Resolved]
